FAERS Safety Report 20445789 (Version 1)
Quarter: 2022Q1

REPORT INFORMATION
  Report Type: Report from Study
  Country: CA (occurrence: CA)
  Receive Date: 20220208
  Receipt Date: 20220208
  Transmission Date: 20220423
  Serious: Yes (Hospitalization)
  Sender: FDA-Public Use
  Company Number: CA-JAZZ-2022-CA-002568

PATIENT
  Sex: Male

DRUGS (9)
  1. XYREM [Suspect]
     Active Substance: SODIUM OXYBATE
     Indication: Cataplexy
     Dosage: 4.5 GRAM, TWO EQUAL
     Route: 048
     Dates: start: 20150202, end: 201502
  2. XYREM [Suspect]
     Active Substance: SODIUM OXYBATE
     Dosage: 6 GRAM, TWO EQUAL DOSES
     Dates: start: 20160216, end: 2016
  3. XYREM [Suspect]
     Active Substance: SODIUM OXYBATE
     Dosage: 7.5 GRAM, TWO EQUAL DOSES
     Route: 048
     Dates: start: 20150302, end: 2015
  4. XYREM [Suspect]
     Active Substance: SODIUM OXYBATE
     Dosage: 9 GRAM, TWO EQUAL DOSES
     Route: 048
     Dates: start: 2015, end: 201509
  5. XYREM [Suspect]
     Active Substance: SODIUM OXYBATE
     Dosage: 6.75 GRAM, TWO UNEQUAL DOSES
     Route: 048
     Dates: start: 201509, end: 201603
  6. XYREM [Suspect]
     Active Substance: SODIUM OXYBATE
     Dosage: 9 GRAM, TWO EQUAL DOSES
     Route: 048
     Dates: start: 201603, end: 201911
  7. XYREM [Suspect]
     Active Substance: SODIUM OXYBATE
     Dosage: 9 GRAM, TWO EQUAL DOSES, QHS AND 2.5 - 4HRS AFTER 1ST DOSE
     Route: 048
     Dates: start: 202001
  8. BISOPROLOL [Concomitant]
     Active Substance: BISOPROLOL
     Dosage: 5 MILLIGRAM, BID
  9. IVABRADINE [Concomitant]
     Active Substance: IVABRADINE
     Dosage: 5 MILLIGRAM, BID

REACTIONS (1)
  - Blood glucose decreased [Unknown]
